FAERS Safety Report 11423957 (Version 1)
Quarter: 2015Q3

REPORT INFORMATION
  Report Type: Spontaneous
  Country: US (occurrence: US)
  Receive Date: 20150827
  Receipt Date: 20150827
  Transmission Date: 20151125
  Serious: No
  Sender: FDA-Public Use
  Company Number: US-JNJFOC-20150706440

PATIENT
  Sex: Female
  Weight: 113.85 kg

DRUGS (6)
  1. MULTIVITAMINES [Concomitant]
     Active Substance: VITAMINS
     Indication: MUSCLE SPASMS
  2. TRAMADOL. [Concomitant]
     Active Substance: TRAMADOL
     Indication: PAIN
  3. VESICARE [Concomitant]
     Active Substance: SOLIFENACIN SUCCINATE
  4. IBUPROFEN. [Suspect]
     Active Substance: IBUPROFEN
     Route: 065
  5. IBUPROFEN. [Suspect]
     Active Substance: IBUPROFEN
     Indication: ARTHRITIS
     Dosage: HUGE AMOUNT
     Route: 065
  6. LYRICA [Concomitant]
     Active Substance: PREGABALIN
     Dates: start: 20140709

REACTIONS (2)
  - Hyperchlorhydria [Unknown]
  - Incorrect dose administered [Unknown]
